FAERS Safety Report 6949702-3 (Version None)
Quarter: 2010Q3

REPORT INFORMATION
  Report Type: 
  Country: None (occurrence: None)
  Receive Date: 20100828
  Receipt Date: 20100112
  Transmission Date: 20110219
  Serious: No
  Sender: FDA-Public Use
  Company Number: US-ABBOTT-10P-163-0618713-00

PATIENT
  Sex: Male
  Weight: 104.42 kg

DRUGS (2)
  1. NIASPAN [Suspect]
     Indication: BLOOD TRIGLYCERIDES INCREASED
     Dosage: AT NIGHT
     Dates: start: 20100106
  2. IBUPROFEN [Concomitant]
     Indication: PREMEDICATION

REACTIONS (3)
  - FLUSHING [None]
  - HEADACHE [None]
  - PRURITUS [None]
